FAERS Safety Report 4590518-3 (Version None)
Quarter: 2005Q1

REPORT INFORMATION
  Report Type: 
  Country: None (occurrence: None)
  Receive Date: 20050224
  Receipt Date: 20020523
  Transmission Date: 20050727
  Serious: Yes (Hospitalization, Disabling)
  Sender: FDA-Public Use
  Company Number: DE-ROCHE-313841

PATIENT
  Age: 45 Year
  Sex: Female
  Weight: 74 kg

DRUGS (16)
  1. MYCOPHENOLATE MOFETIL [Suspect]
     Route: 048
     Dates: start: 20020830, end: 20030310
  2. MYCOPHENOLATE MOFETIL [Suspect]
     Route: 048
     Dates: start: 20020222, end: 20020828
  3. MYCOPHENOLATE MOFETIL [Suspect]
     Route: 048
     Dates: start: 20030314, end: 20030914
  4. SANDIMMUNE [Concomitant]
     Dates: start: 20020622, end: 20030910
  5. DECORTIN H [Concomitant]
     Dates: start: 20020612
  6. FUROSEMIDE [Concomitant]
     Dates: start: 19951207
  7. BONDIOL [Concomitant]
     Dates: start: 19951207
  8. COTRIM D.S. [Concomitant]
     Dates: start: 20011212
  9. LASIX [Concomitant]
     Dates: start: 20011211
  10. PANTOPRAZOLE SODIUM [Concomitant]
     Dates: start: 20011211
  11. AMPHO MORONAL [Concomitant]
     Dates: start: 20011212
  12. ARANESP [Concomitant]
     Route: 058
     Dates: start: 20020108
  13. NORVASC [Concomitant]
     Dates: start: 20020111
  14. ZINNAT [Concomitant]
     Dates: start: 20020131
  15. TOREM COR [Concomitant]
     Dates: start: 20040830
  16. MICARDIS [Concomitant]
     Dates: start: 20031208

REACTIONS (9)
  - ALANINE AMINOTRANSFERASE INCREASED [None]
  - ASPARTATE AMINOTRANSFERASE INCREASED [None]
  - BLOOD LACTATE DEHYDROGENASE INCREASED [None]
  - CARDIOVASCULAR DISORDER [None]
  - CHOLELITHIASIS [None]
  - DIARRHOEA [None]
  - NAUSEA [None]
  - RENAL VESSEL DISORDER [None]
  - URINARY TRACT INFECTION [None]
